FAERS Safety Report 25132937 (Version 3)
Quarter: 2025Q2

REPORT INFORMATION
  Report Type: Spontaneous
  Country: US (occurrence: US)
  Receive Date: 20250328
  Receipt Date: 20250410
  Transmission Date: 20250716
  Serious: Yes (Other)
  Sender: NOVO NORDISK
  Company Number: US-NOVOPROD-1395725

PATIENT
  Age: 58 Year
  Sex: Female

DRUGS (1)
  1. OZEMPIC [Suspect]
     Active Substance: SEMAGLUTIDE
     Indication: Type 2 diabetes mellitus
     Dosage: 2 MG, QW
     Route: 058
     Dates: start: 202202, end: 202501

REACTIONS (5)
  - Choking [Unknown]
  - Tonsillar hypertrophy [Unknown]
  - Thyroid cyst [Unknown]
  - Tonsillar inflammation [Unknown]
  - Ear pain [Unknown]

NARRATIVE: CASE EVENT DATE: 20240401
